FAERS Safety Report 7110966-7 (Version None)
Quarter: 2010Q4

REPORT INFORMATION
  Report Type: 
  Country: None (occurrence: None)
  Receive Date: 20101112
  Receipt Date: 20101102
  Transmission Date: 20110411
  Serious: Yes (Hospitalization)
  Sender: FDA-Public Use
  Company Number: 021066

PATIENT
  Sex: Female

DRUGS (2)
  1. KEPPRA [Suspect]
     Dosage: (500 MG BID)
     Dates: start: 20100601
  2. LISINOPRIL [Concomitant]

REACTIONS (3)
  - DISEASE RECURRENCE [None]
  - FALL [None]
  - MENINGIOMA [None]
